FAERS Safety Report 7381094-0 (Version None)
Quarter: 2011Q1

REPORT INFORMATION
  Report Type: 
  Country: None (occurrence: None)
  Receive Date: 20110329
  Receipt Date: 20100827
  Transmission Date: 20110831
  Serious: No
  Sender: FDA-Public Use
  Company Number: US-AMGEN-KDL434490

PATIENT
  Age: 77 Year
  Sex: Male

DRUGS (2)
  1. SENSIPAR [Suspect]
     Indication: HYPERPARATHYROIDISM SECONDARY
  2. UNSPECIFIED NUTRITIONAL SUPPLEMENT [Concomitant]

REACTIONS (3)
  - PRURITUS [None]
  - MALAISE [None]
  - NAUSEA [None]
